FAERS Safety Report 10447008 (Version 2)
Quarter: 2014Q3

REPORT INFORMATION
  Report Type: Report from Study
  Country: AT (occurrence: AT)
  Receive Date: 20140911
  Receipt Date: 20140911
  Transmission Date: 20150326
  Serious: Yes (Death, Disabling)
  Sender: FDA-Public Use
  Company Number: PHHY2013AT145856

PATIENT
  Sex: Female
  Weight: 71 kg

DRUGS (4)
  1. EVEROLIMUS [Suspect]
     Active Substance: EVEROLIMUS
     Indication: BREAST CANCER
     Dosage: 5 MG, DAILY
     Dates: start: 20130603
  2. EXEMESTANE. [Suspect]
     Active Substance: EXEMESTANE
     Dosage: 25 MG, DAILY
     Dates: start: 20130603
  3. CONCOR [Concomitant]
     Active Substance: BISOPROLOL FUMARATE
     Dosage: 2.5 MG, QD
     Dates: start: 2011
  4. CONCOR [Concomitant]
     Active Substance: BISOPROLOL FUMARATE
     Dosage: 2.5 MG, BID

REACTIONS (6)
  - Cough [Fatal]
  - Diarrhoea [Recovering/Resolving]
  - Jaundice [Not Recovered/Not Resolved]
  - Nausea [Not Recovered/Not Resolved]
  - Metastases to liver [Unknown]
  - Dyspnoea [Fatal]

NARRATIVE: CASE EVENT DATE: 20130606
